FAERS Safety Report 10673144 (Version 1)
Quarter: 2014Q4

REPORT INFORMATION
  Report Type: Not Available
  Country: IN (occurrence: IN)
  Receive Date: 20141224
  Receipt Date: 20141224
  Transmission Date: 20150529
  Serious: No
  Sender: FDA-Public Use
  Company Number: IN-LUPIN PHARMACEUTICALS INC.-E2B_00002681

PATIENT
  Age: 38 Year
  Sex: Male

DRUGS (1)
  1. CIPROLUP 500 [Suspect]
     Active Substance: CIPROFLOXACIN HYDROCHLORIDE
     Indication: PRURITUS
     Route: 048
     Dates: start: 20141023

REACTIONS (4)
  - Headache [Not Recovered/Not Resolved]
  - Intentional product misuse [Unknown]
  - Feeling abnormal [Not Recovered/Not Resolved]
  - Dizziness [Not Recovered/Not Resolved]

NARRATIVE: CASE EVENT DATE: 20141023
